FAERS Safety Report 16785040 (Version 1)
Quarter: 2019Q4

REPORT INFORMATION
  Report Type: Spontaneous
  Country: US (occurrence: US)
  Receive Date: 20190906
  Receipt Date: 20190906
  Transmission Date: 20200122
  Serious: No
  Sender: FDA-Public Use
  Company Number: None

PATIENT
  Age: 49 Year
  Sex: Female
  Weight: 73.35 kg

DRUGS (9)
  1. AIMOVIG [Concomitant]
     Active Substance: ERENUMAB-AOOE
  2. METHYLPHENIDATE 54MG ER OSM TABLET, GENERIC CONCERTA 54MG ER TABLET [Suspect]
     Active Substance: METHYLPHENIDATE
     Indication: ATTENTION DEFICIT/HYPERACTIVITY DISORDER
     Dosage: ?          QUANTITY:1 TABLET(S);?
     Route: 048
     Dates: start: 20190822, end: 20190829
  3. METHYLPHENIDATE 54 MG ER [Concomitant]
     Active Substance: METHYLPHENIDATE
  4. VITAMIN B12 [Concomitant]
     Active Substance: CYANOCOBALAMIN
  5. FERROUS GLUCONATE [Concomitant]
     Active Substance: FERROUS GLUCONATE
  6. VITAMIN D3 [Concomitant]
     Active Substance: CHOLECALCIFEROL
  7. VITAMIN B2 [Concomitant]
     Active Substance: RIBOFLAVIN
  8. COENZYME Q10 [Concomitant]
     Active Substance: UBIDECARENONE
  9. MAGNESIUM OXIDE. [Concomitant]
     Active Substance: MAGNESIUM OXIDE

REACTIONS (15)
  - Nausea [None]
  - Memory impairment [None]
  - Headache [None]
  - Anxiety [None]
  - Palpitations [None]
  - Stress [None]
  - Asthenia [None]
  - Feeling abnormal [None]
  - Abdominal pain upper [None]
  - Insomnia [None]
  - Nervousness [None]
  - Dry mouth [None]
  - Weight increased [None]
  - Decreased appetite [None]
  - Disturbance in attention [None]

NARRATIVE: CASE EVENT DATE: 20190829
